FAERS Safety Report 21934837 (Version 1)
Quarter: 2023Q1

REPORT INFORMATION
  Report Type: Spontaneous
  Country: BR (occurrence: BR)
  Receive Date: 20230201
  Receipt Date: 20230201
  Transmission Date: 20230418
  Serious: Yes (Disabling, Other)
  Sender: FDA-Public Use
  Company Number: BR-CELLTRION INC.-2023BR001938

PATIENT

DRUGS (6)
  1. INFLIXIMAB [Suspect]
     Active Substance: INFLIXIMAB
     Indication: Rheumatoid arthritis
     Dosage: 3 AMPOULES EVERY 8 WEEKS
     Route: 042
     Dates: start: 2022
  2. FOLIC ACID [Concomitant]
     Active Substance: FOLIC ACID
     Indication: Anaemia
     Dosage: 1 PILL PER DAY
     Route: 048
  3. METHOTREXATE [Concomitant]
     Active Substance: METHOTREXATE
     Indication: Rheumatoid arthritis
     Dosage: 6 PILL PER WEEK
     Route: 048
  4. FUROSEMIDE [Concomitant]
     Active Substance: FUROSEMIDE
     Indication: Hypertension
     Dosage: 1 PILL PER DAY
     Route: 048
  5. LOSARTAN POTASSIUM [Concomitant]
     Active Substance: LOSARTAN POTASSIUM
     Indication: Hypertension
     Dosage: 1 PILL PER DAY
     Route: 048
  6. SPIRONOLACTONE [Concomitant]
     Active Substance: SPIRONOLACTONE
     Indication: Hypertension
     Dosage: 1 PILL PER DAY
     Route: 048

REACTIONS (10)
  - Rheumatoid arthritis [Unknown]
  - Bedridden [Unknown]
  - Loss of personal independence in daily activities [Unknown]
  - Hand fracture [Unknown]
  - Food craving [Unknown]
  - Headache [Unknown]
  - Vomiting [Unknown]
  - Dizziness [Unknown]
  - Gait disturbance [Unknown]
  - Drug ineffective [Unknown]
